FAERS Safety Report 21695296 (Version 1)
Quarter: 2022Q4

REPORT INFORMATION
  Report Type: Report from Study
  Country: HN (occurrence: HN)
  Receive Date: 20221207
  Receipt Date: 20221207
  Transmission Date: 20230113
  Serious: Yes (Disabling)
  Sender: FDA-Public Use
  Company Number: HN-MYLANLABS-2022M1136043

PATIENT
  Age: 65 Year
  Sex: Male
  Weight: 77.11 kg

DRUGS (1)
  1. LIPITOR [Suspect]
     Active Substance: ATORVASTATIN CALCIUM
     Indication: Blood cholesterol increased
     Dosage: 1 DOSAGE FORM, QD ( 80 MG EVERY DAY)
     Route: 048
     Dates: start: 20220201

REACTIONS (2)
  - Cerebrovascular accident [Not Recovered/Not Resolved]
  - Treatment noncompliance [Unknown]

NARRATIVE: CASE EVENT DATE: 20220622
